FAERS Safety Report 25035317 (Version 2)
Quarter: 2025Q2

REPORT INFORMATION
  Report Type: Spontaneous
  Country: US (occurrence: US)
  Receive Date: 20250304
  Receipt Date: 20250414
  Transmission Date: 20250716
  Serious: No
  Sender: GLAXOSMITHKLINE
  Company Number: US-GSK-US2025022873

PATIENT
  Sex: Male

DRUGS (2)
  1. NUCALA [Suspect]
     Active Substance: MEPOLIZUMAB
     Indication: Asthma
     Dosage: 100 MG/ML, MO
  2. NUCALA [Suspect]
     Active Substance: MEPOLIZUMAB
     Indication: Bronchitis

REACTIONS (2)
  - Product use in unapproved indication [Unknown]
  - Product complaint [Unknown]
